FAERS Safety Report 4931370-3 (Version None)
Quarter: 2006Q1

REPORT INFORMATION
  Report Type: 
  Country: None (occurrence: None)
  Receive Date: 20060303
  Receipt Date: 20060223
  Transmission Date: 20060701
  Serious: Yes (Other)
  Sender: FDA-Public Use
  Company Number: PHEH2006US02570

PATIENT
  Sex: Female

DRUGS (1)
  1. DIOVAN [Suspect]
     Route: 048
     Dates: end: 20060221

REACTIONS (3)
  - DIZZINESS [None]
  - HERPES ZOSTER [None]
  - HYPONATRAEMIA [None]
